FAERS Safety Report 9683665 (Version 3)
Quarter: 2014Q1

REPORT INFORMATION
  Report Type: Spontaneous
  Country: DE (occurrence: DE)
  Receive Date: 20131112
  Receipt Date: 20140318
  Transmission Date: 20141002
  Serious: Yes (Other)
  Sender: FDA-Public Use
  Company Number: DE-JNJFOC-20131106163

PATIENT
  Age: 82 Year
  Sex: Female
  Weight: 57 kg

DRUGS (12)
  1. XARELTO [Suspect]
     Indication: CEREBROVASCULAR ACCIDENT PROPHYLAXIS
     Route: 048
     Dates: end: 201305
  2. XARELTO [Suspect]
     Indication: ATRIAL FIBRILLATION
     Route: 048
     Dates: end: 201305
  3. FUROSEMID [Concomitant]
     Dosage: 40 (UNITS UNSPECIFIED)
     Route: 048
  4. POTASSIUM CITRATE [Concomitant]
     Route: 048
  5. MICARDIS [Concomitant]
     Route: 048
  6. PANTOPRAZOLE [Concomitant]
     Route: 048
  7. LYRICA [Concomitant]
     Route: 048
  8. FAVISTAN [Concomitant]
     Route: 048
  9. OXYCODON [Concomitant]
     Route: 065
  10. MARCUMAR [Concomitant]
     Route: 048
  11. MOVICOL [Concomitant]
     Route: 065
  12. SIMVASTATIN [Concomitant]
     Route: 048

REACTIONS (1)
  - Blood creatinine increased [Recovered/Resolved]
